FAERS Safety Report 10018335 (Version 1)
Quarter: 2014Q1

REPORT INFORMATION
  Report Type: Spontaneous
  Country: US (occurrence: US)
  Receive Date: 20140318
  Receipt Date: 20140318
  Transmission Date: 20141002
  Serious: Yes (Other)
  Sender: FDA-Public Use
  Company Number: US-BRISTOL-MYERS SQUIBB COMPANY-20123964

PATIENT
  Age: 53 Year
  Sex: Female
  Weight: 87.07 kg

DRUGS (1)
  1. ERBITUX [Suspect]
     Indication: COLON CANCER STAGE IV
     Dates: start: 20140107

REACTIONS (3)
  - Skin disorder [Unknown]
  - Chapped lips [Unknown]
  - Dry skin [Unknown]
